FAERS Safety Report 15399806 (Version 2)
Quarter: 2019Q2

REPORT INFORMATION
  Report Type: Spontaneous
  Country: US (occurrence: US)
  Receive Date: 20180918
  Receipt Date: 20190401
  Transmission Date: 20190711
  Serious: No
  Sender: FDA-Public Use
  Company Number: US-VIIV HEALTHCARE LIMITED-US2018GSK169749

PATIENT
  Sex: Male
  Weight: 111.11 kg

DRUGS (1)
  1. TRIUMEQ [Suspect]
     Active Substance: ABACAVIR SULFATE\DOLUTEGRAVIR SODIUM\LAMIVUDINE
     Indication: HIV INFECTION
     Dosage: 1 TABLET, 1D
     Route: 048
     Dates: start: 20150408, end: 20181010

REACTIONS (4)
  - Head discomfort [Unknown]
  - Pain [Unknown]
  - Headache [Unknown]
  - Tension headache [Unknown]
